FAERS Safety Report 18642012 (Version 1)
Quarter: 2020Q4

REPORT INFORMATION
  Report Type: Spontaneous
  Country: US (occurrence: US)
  Receive Date: 20201220
  Receipt Date: 20201220
  Transmission Date: 20210114
  Serious: Yes (Death)
  Sender: FDA-Public Use
  Company Number: None

PATIENT
  Age: 71 Year
  Sex: Male
  Weight: 118.57 kg

DRUGS (1)
  1. CASIRIVIMAB 1,200 MG, IMDEVIMAB 1,200 MG IN SODIUM CHLORIDE 0.9% 250 M [Suspect]
     Active Substance: CASIRIVIMAB\IMDEVIMAB
     Indication: COVID-19
     Route: 041

REACTIONS (4)
  - Confusional state [None]
  - Pulse absent [None]
  - Conjunctivitis [None]
  - Hyporesponsive to stimuli [None]

NARRATIVE: CASE EVENT DATE: 20201215
